FAERS Safety Report 5621869-9 (Version None)
Quarter: 2008Q1

REPORT INFORMATION
  Report Type: 
  Country: None (occurrence: None)
  Receive Date: 20080211
  Receipt Date: 20071127
  Transmission Date: 20080703
  Serious: No
  Sender: FDA-Public Use
  Company Number: US-BRISTOL-MYERS SQUIBB COMPANY-13995667

PATIENT
  Sex: Female

DRUGS (3)
  1. IXEMPRA FOR INJ [Suspect]
     Indication: BREAST CANCER METASTATIC
     Dosage: THE PATIENT IS TO RECEIVE IXABEPILONE EVERY 3 WEEKS.
     Route: 042
     Dates: start: 20071101
  2. METHOTREXATE [Concomitant]
     Route: 037
  3. NEUPOGEN [Concomitant]

REACTIONS (2)
  - BURNING SENSATION [None]
  - SKIN EXFOLIATION [None]
